FAERS Safety Report 22374512 (Version 1)
Quarter: 2023Q2

REPORT INFORMATION
  Report Type: Report from Study
  Country: US (occurrence: US)
  Receive Date: 20230526
  Receipt Date: 20230526
  Transmission Date: 20230721
  Serious: Yes (Hospitalization)
  Sender: FDA-Public Use
  Company Number: US-BAYER-2023A069780

PATIENT
  Age: 80 Year
  Sex: Male

DRUGS (3)
  1. NUBEQA [Suspect]
     Active Substance: DAROLUTAMIDE
  2. ORGOVYX [Concomitant]
     Active Substance: RELUGOLIX
     Indication: Prostate cancer
     Dosage: 120 MG, QD
  3. LYNPARZA [Concomitant]
     Active Substance: OLAPARIB

REACTIONS (4)
  - Cerebrovascular accident [None]
  - Hepatic enzyme increased [None]
  - Fatigue [None]
  - Decreased appetite [None]
